FAERS Safety Report 9474087 (Version 4)
Quarter: 2013Q4

REPORT INFORMATION
  Report Type: Spontaneous
  Country: US (occurrence: None)
  Receive Date: 20130820
  Receipt Date: 20131025
  Transmission Date: 20140711
  Serious: Yes (Hospitalization, Other)
  Sender: FDA-Public Use
  Company Number: ACO_37900_2013

PATIENT
  Age: 59 Year
  Sex: Female

DRUGS (8)
  1. AMPYRA [Suspect]
     Indication: PRODUCT USED FOR UNKNOWN INDICATION
     Route: 048
     Dates: start: 201302, end: 201304
  2. TYSABRI (NATALIZUMAB) [Suspect]
     Route: 042
  3. BACLOFEN (BACLOFEN) [Concomitant]
  4. ATENOLOL (ATENOLOL) [Concomitant]
  5. LISINOPRIL (LISINOPRIL) [Concomitant]
  6. SIMVASTATIN (SIMVASTATIN) [Concomitant]
  7. CITALOPRAM (CITALOPRAM) [Concomitant]
  8. TEMAZEPAM (TEMAZEPAM) [Concomitant]

REACTIONS (1)
  - Grand mal convulsion [None]
